FAERS Safety Report 10241123 (Version 1)
Quarter: 2014Q2

REPORT INFORMATION
  Report Type: Spontaneous
  Country: US (occurrence: US)
  Receive Date: 20140617
  Receipt Date: 20140617
  Transmission Date: 20141212
  Serious: No
  Sender: FDA-Public Use
  Company Number: US-009507513-1406USA000365

PATIENT
  Sex: 0
  Weight: 63.49 kg

DRUGS (1)
  1. NUVARING [Suspect]
     Dosage: UNK
     Dates: start: 201311

REACTIONS (1)
  - Inappropriate schedule of drug administration [Unknown]
